FAERS Safety Report 11748625 (Version 1)
Quarter: 2015Q4

REPORT INFORMATION
  Report Type: Spontaneous
  Country: GB (occurrence: GB)
  Receive Date: 20151117
  Receipt Date: 20151117
  Transmission Date: 20160304
  Serious: Yes (Other)
  Sender: FDA-Public Use
  Company Number: GB-HOSPIRA-3079630

PATIENT
  Age: 72 Year
  Sex: Female
  Weight: 55.8 kg

DRUGS (2)
  1. WATER FOR INJECTION [Suspect]
     Active Substance: WATER
     Indication: CATARACT OPERATION
     Route: 047
     Dates: start: 20150513
  2. CEFUROXIME SODIUM. [Suspect]
     Active Substance: CEFUROXIME SODIUM
     Indication: CATARACT OPERATION
     Route: 047
     Dates: start: 20150513

REACTIONS (2)
  - Corneal opacity [Unknown]
  - Incorrect route of drug administration [Unknown]

NARRATIVE: CASE EVENT DATE: 20150513
